FAERS Safety Report 5750828-0 (Version None)
Quarter: 2008Q2

REPORT INFORMATION
  Report Type: 
  Country: None (occurrence: None)
  Receive Date: 20080528
  Receipt Date: 20080519
  Transmission Date: 20081010
  Serious: Yes (Other)
  Sender: FDA-Public Use
  Company Number: B0359812A

PATIENT
  Age: 57 Year
  Sex: Female

DRUGS (11)
  1. SEROXAT [Suspect]
     Dosage: 20MG PER DAY
     Route: 065
     Dates: start: 19970416, end: 20040801
  2. AMITRIPTYLINE HCL [Concomitant]
     Indication: PAIN
     Dates: start: 19881010
  3. BISOPROLOL [Concomitant]
     Dates: start: 20040501
  4. LACIDIPINE [Concomitant]
     Indication: HYPERTENSION
  5. PERINDOPRIL ERBUMINE [Concomitant]
  6. SYMBICORT [Concomitant]
  7. PREDNISOLONE [Concomitant]
     Dates: start: 20040524
  8. THIAMINE [Concomitant]
     Indication: ALCOHOL USE
     Dates: start: 20040521
  9. TRAMADOL HCL [Concomitant]
     Indication: PAIN
     Dosage: 50MG AS REQUIRED
     Dates: start: 20040525, end: 20040527
  10. PHYLLOCONTIN [Concomitant]
     Dates: end: 20041201
  11. ESCITALOPRAM [Concomitant]

REACTIONS (13)
  - AGGRESSION [None]
  - BEDRIDDEN [None]
  - BURNING SENSATION [None]
  - DIZZINESS [None]
  - DRUG WITHDRAWAL SYNDROME [None]
  - HEADACHE [None]
  - INSOMNIA [None]
  - MUSCLE CONTRACTIONS INVOLUNTARY [None]
  - MUSCLE SPASMS [None]
  - MUSCULOSKELETAL STIFFNESS [None]
  - PAIN [None]
  - PARAESTHESIA [None]
  - WHEEZING [None]
